FAERS Safety Report 10062847 (Version 1)
Quarter: 2014Q1

REPORT INFORMATION
  Report Type: Spontaneous
  Country: US (occurrence: None)
  Receive Date: 20140328
  Receipt Date: 20140328
  Transmission Date: 20141002
  Serious: No
  Sender: FDA-Public Use
  Company Number: CABO-14004005

PATIENT
  Age: 74 Year
  Sex: Male

DRUGS (3)
  1. COMETRIQ [Suspect]
     Indication: LUNG NEOPLASM MALIGNANT
     Route: 048
     Dates: start: 20140113
  2. SYNTHROID (LEVOTHYROXINE SODIUM) [Concomitant]
  3. LORATADINE (LORATADINE) [Concomitant]

REACTIONS (4)
  - Dyspepsia [None]
  - Nausea [None]
  - Vomiting [None]
  - Off label use [None]
